FAERS Safety Report 7713334-X (Version None)
Quarter: 2011Q3

REPORT INFORMATION
  Report Type: 
  Country: None (occurrence: None)
  Receive Date: 20110826
  Receipt Date: 20110819
  Transmission Date: 20111222
  Serious: Yes (Other)
  Sender: FDA-Public Use
  Company Number: US-BAYER-201020017NA

PATIENT
  Age: 22 Year
  Sex: Female
  Weight: 68.027 kg

DRUGS (3)
  1. LAMICTAL [Concomitant]
  2. YAZ [Suspect]
     Dosage: UNK UNK, UNK
     Route: 048
     Dates: start: 20090301, end: 20100301
  3. YASMIN [Suspect]
     Dosage: UNK
     Dates: start: 20040101, end: 20080101

REACTIONS (5)
  - GALLBLADDER NON-FUNCTIONING [None]
  - INJURY [None]
  - CHOLECYSTITIS [None]
  - ORGAN FAILURE [None]
  - GALLBLADDER DISORDER [None]
